FAERS Safety Report 5342825-4 (Version None)
Quarter: 2007Q2

REPORT INFORMATION
  Report Type: 
  Country: None (occurrence: None)
  Receive Date: 20070601
  Receipt Date: 20070527
  Transmission Date: 20071010
  Serious: Yes (Other)
  Sender: FDA-Public Use
  Company Number: US-PFIZER INC-2007042614

PATIENT
  Age: 30 Year
  Sex: Female
  Weight: 78 kg

DRUGS (5)
  1. DEPO-MEDROL [Suspect]
     Route: 042
  2. ZYRTEC [Concomitant]
  3. SINGULAIR [Concomitant]
  4. PEPCID [Concomitant]
  5. ZOFRAN [Concomitant]

REACTIONS (2)
  - DYSPNOEA [None]
  - INCORRECT ROUTE OF DRUG ADMINISTRATION [None]
